FAERS Safety Report 20222619 (Version 2)
Quarter: 2022Q1

REPORT INFORMATION
  Report Type: Spontaneous
  Country: US (occurrence: US)
  Receive Date: 20211223
  Receipt Date: 20220113
  Transmission Date: 20220423
  Serious: Yes (Hospitalization)
  Sender: FDA-Public Use
  Company Number: US-TEVA-2021-US-1989685

PATIENT
  Age: 55 Year
  Sex: Female

DRUGS (10)
  1. MESALAMINE [Suspect]
     Active Substance: MESALAMINE
     Indication: Colitis ulcerative
     Route: 054
  2. MESALAMINE [Suspect]
     Active Substance: MESALAMINE
     Indication: Proctitis
  3. HYDROCORTISONE [Suspect]
     Active Substance: HYDROCORTISONE
     Indication: Colitis ulcerative
     Dosage: ENEMAS
     Route: 065
  4. HYDROCORTISONE [Suspect]
     Active Substance: HYDROCORTISONE
     Indication: Proctitis
  5. PREDNISONE [Suspect]
     Active Substance: PREDNISONE
     Indication: Colitis ulcerative
     Dosage: 20 MILLIGRAM DAILY;
     Route: 048
  6. PREDNISONE [Suspect]
     Active Substance: PREDNISONE
     Indication: Proctitis
  7. INFLIXIMAB [Suspect]
     Active Substance: INFLIXIMAB
     Indication: Colitis ulcerative
     Route: 065
  8. INFLIXIMAB [Suspect]
     Active Substance: INFLIXIMAB
     Indication: Proctitis
  9. MERCAPTOPURINE [Suspect]
     Active Substance: MERCAPTOPURINE
     Indication: Colitis ulcerative
     Dosage: 50 MILLIGRAM DAILY;
     Route: 065
  10. MERCAPTOPURINE [Suspect]
     Active Substance: MERCAPTOPURINE
     Indication: Proctitis

REACTIONS (3)
  - Cytomegalovirus infection [Unknown]
  - Herpes simplex [Unknown]
  - Drug ineffective [Unknown]
